FAERS Safety Report 4341463-X (Version None)
Quarter: 2004Q2

REPORT INFORMATION
  Report Type: 
  Country: None (occurrence: None)
  Receive Date: 20040415
  Receipt Date: 20040325
  Transmission Date: 20050107
  Serious: Yes (Hospitalization, Other)
  Sender: FDA-Public Use
  Company Number: USA040363110

PATIENT
  Age: 66 Year
  Sex: Male
  Weight: 61 kg

DRUGS (4)
  1. HUMULIN N [Suspect]
     Indication: DIABETES MELLITUS
     Dates: end: 20030101
  2. HUMALOG [Suspect]
     Indication: DIABETES MELLITUS
     Dates: start: 19990101
  3. LANTUS [Concomitant]
  4. BACTRIM [Concomitant]

REACTIONS (9)
  - ARTHRITIS [None]
  - ASTHENIA [None]
  - BONE DENSITY DECREASED [None]
  - CARDIAC FAILURE CONGESTIVE [None]
  - CARDIAC OPERATION [None]
  - DIFFICULTY IN WALKING [None]
  - MOVEMENT DISORDER [None]
  - PROSTATIC DISORDER [None]
  - WEIGHT DECREASED [None]
